FAERS Safety Report 10162575 (Version 1)
Quarter: 2014Q2

REPORT INFORMATION
  Report Type: Report from Study
  Country: CA (occurrence: CA)
  Receive Date: 20140509
  Receipt Date: 20140509
  Transmission Date: 20141212
  Serious: Yes (Hospitalization)
  Sender: FDA-Public Use
  Company Number: CA-JNJFOC-20140502686

PATIENT
  Age: 41 Year
  Sex: Male
  Weight: 82.56 kg

DRUGS (4)
  1. REMICADE [Suspect]
     Indication: COLITIS ULCERATIVE
     Dosage: THERAPY DURATION: 2 HOURS
     Route: 042
     Dates: start: 20131218
  2. REMICADE [Suspect]
     Indication: CROHN^S DISEASE
     Dosage: THERAPY DURATION: 2 HOURS
     Route: 042
     Dates: start: 20131218
  3. PREDNISONE [Concomitant]
     Route: 048
  4. SYNTHROID [Concomitant]
     Route: 065

REACTIONS (3)
  - Abdominal pain [Not Recovered/Not Resolved]
  - Vomiting [Not Recovered/Not Resolved]
  - Malaise [Not Recovered/Not Resolved]
